FAERS Safety Report 8624395-8 (Version None)
Quarter: 2012Q3

REPORT INFORMATION
  Report Type: 
  Country: None (occurrence: None)
  Receive Date: 20120827
  Receipt Date: 20120822
  Transmission Date: 20120928
  Serious: Yes (Other)
  Sender: FDA-Public Use
  Company Number: US-PFIZER INC-2012206835

PATIENT
  Age: 46 Year
  Sex: Female

DRUGS (3)
  1. LYRICA [Suspect]
     Indication: PAIN
     Dosage: 75 MG, 3X/DAY
     Dates: start: 20070101
  2. DILANTIN [Concomitant]
     Indication: PAIN
     Dosage: UNK
  3. FENTANYL [Concomitant]
     Indication: PAIN
     Dosage: UNK

REACTIONS (1)
  - ABASIA [None]
